FAERS Safety Report 4291184-7 (Version None)
Quarter: 2004Q1

REPORT INFORMATION
  Report Type: 
  Country: None (occurrence: None)
  Receive Date: 20040211
  Receipt Date: 20031107
  Transmission Date: 20041129
  Serious: No
  Sender: FDA-Public Use
  Company Number: US-GLAXOSMITHKLINE-A0438869A

PATIENT
  Sex: Female

DRUGS (2)
  1. PAXIL [Suspect]
     Route: 048
     Dates: start: 19950101
  2. TRANXENE [Suspect]
     Dosage: 15MG THREE TIMES PER DAY
     Route: 065

REACTIONS (2)
  - ANTISOCIAL BEHAVIOUR [None]
  - DEPRESSION [None]
